FAERS Safety Report 23472668 (Version 2)
Quarter: 2024Q1

REPORT INFORMATION
  Report Type: Report from Study
  Country: US (occurrence: US)
  Receive Date: 20240202
  Receipt Date: 20240229
  Transmission Date: 20240409
  Serious: No
  Sender: FDA-Public Use
  Company Number: US-BoehringerIngelheim-2024-BI-006258

PATIENT
  Age: 44 Year
  Sex: Female

DRUGS (2)
  1. OFEV [Suspect]
     Active Substance: NINTEDANIB
     Indication: Interstitial lung disease
     Dosage: TAKE WITH FOOD
     Route: 048
     Dates: start: 20240128, end: 2024
  2. OFEV [Suspect]
     Active Substance: NINTEDANIB
     Dosage: TAKE WITH FOOD
     Route: 048
     Dates: start: 2024

REACTIONS (4)
  - Decreased appetite [Unknown]
  - Heart rate increased [Not Recovered/Not Resolved]
  - Paraesthesia [Not Recovered/Not Resolved]
  - Chest pain [Not Recovered/Not Resolved]

NARRATIVE: CASE EVENT DATE: 20240101
